FAERS Safety Report 9167277 (Version 1)
Quarter: 2013Q1

REPORT INFORMATION
  Report Type: Spontaneous
  Country: FR (occurrence: None)
  Receive Date: 20130304
  Receipt Date: 20130304
  Transmission Date: 20140127
  Serious: Yes (Hospitalization)
  Sender: FDA-Public Use
  Company Number: 7195889

PATIENT
  Age: 80 Year
  Sex: Female

DRUGS (9)
  1. LEVOTHYROX (LEVOTHYROXINE SODIUM) INFUSION [Suspect]
     Route: 048
  2. PRADAXA [Suspect]
     Route: 048
     Dates: start: 20120919, end: 20121111
  3. ALDACTAZINE [Suspect]
     Route: 048
     Dates: start: 20110329, end: 20121111
  4. COVERSYL [Suspect]
     Route: 048
     Dates: end: 20121111
  5. METFORMINE [Suspect]
     Indication: PRODUCT USED FOR UNKNOWN INDICATION
     Route: 048
  6. AMIODARONE [Suspect]
     Dosage: 200 MG, 5 IN 1 WK, ORAL
     Dates: start: 20011105
  7. HEMIGOXINE NATIVELLE [Suspect]
     Route: 048
     Dates: start: 20051216
  8. ZYLORIC (ALLOPURINOL) [Concomitant]
  9. DIOVENOR (DIOSMIN) [Concomitant]

REACTIONS (2)
  - Transient ischaemic attack [None]
  - Renal failure [None]
